FAERS Safety Report 12578576 (Version 1)
Quarter: 2016Q3

REPORT INFORMATION
  Report Type: Spontaneous
  Country: US (occurrence: US)
  Receive Date: 20160721
  Receipt Date: 20160721
  Transmission Date: 20161109
  Serious: No
  Sender: FDA-Public Use
  Company Number: US-BAYER-2016-136061

PATIENT
  Sex: Female

DRUGS (10)
  1. OSCAL [Concomitant]
     Active Substance: CALCIUM CARBONATE
  2. FOLIC ACID. [Concomitant]
     Active Substance: FOLIC ACID
  3. HYDROCODONE [HYDROCODONE] [Concomitant]
     Active Substance: HYDROCODONE
  4. CARVEDILOL. [Concomitant]
     Active Substance: CARVEDILOL
  5. FUROSEMIDE. [Concomitant]
     Active Substance: FUROSEMIDE
  6. AMLODIPINE [Concomitant]
     Active Substance: AMLODIPINE BESYLATE
  7. ATORVASTATIN [Concomitant]
     Active Substance: ATORVASTATIN
  8. ALEVE [Suspect]
     Active Substance: NAPROXEN SODIUM
  9. SULFASALAZINE. [Concomitant]
     Active Substance: SULFASALAZINE
  10. PREDNISONE. [Concomitant]
     Active Substance: PREDNISONE

REACTIONS (1)
  - Drug hypersensitivity [None]
